FAERS Safety Report 8774846 (Version 1)
Quarter: 2012Q4

REPORT INFORMATION
  Report Type: 
  Country: DE (occurrence: DE)
  Receive Date: 20120910
  Receipt Date: 20120910
  Transmission Date: 20130627
  Serious: Yes (Life-Threatening, Hospitalization)
  Sender: FDA-Public Use
  Company Number: DE-JNJFOC-20120900143

PATIENT
  Age: 57 Year
  Sex: Female

DRUGS (21)
  1. HALDOL DECANOATE [Suspect]
     Indication: PSYCHOTIC DISORDER
     Route: 030
     Dates: start: 20111125
  2. CLOZAPIN [Concomitant]
     Indication: PSYCHOTIC DISORDER
     Route: 048
     Dates: start: 20111120, end: 20111121
  3. CLOZAPIN [Concomitant]
     Indication: PSYCHOTIC DISORDER
     Route: 048
     Dates: start: 20111126, end: 20111127
  4. CLOZAPIN [Concomitant]
     Indication: PSYCHOTIC DISORDER
     Route: 048
     Dates: start: 20111118, end: 20111119
  5. CLOZAPIN [Concomitant]
     Indication: PSYCHOTIC DISORDER
     Route: 048
     Dates: start: 20111122, end: 20111123
  6. CLOZAPIN [Concomitant]
     Indication: PSYCHOTIC DISORDER
     Route: 048
     Dates: start: 20111124, end: 20111125
  7. CLOZAPIN [Concomitant]
     Indication: PSYCHOTIC DISORDER
     Route: 048
     Dates: start: 20111127, end: 20111129
  8. DIAZEPAM [Concomitant]
     Indication: PSYCHOTIC DISORDER
     Route: 048
     Dates: start: 20111126, end: 20111129
  9. DIAZEPAM [Concomitant]
     Indication: PSYCHOTIC DISORDER
     Route: 048
     Dates: start: 20111012, end: 20111122
  10. DIAZEPAM [Concomitant]
     Indication: PSYCHOTIC DISORDER
     Route: 048
     Dates: start: 20111123, end: 20111125
  11. ORFIRIL [Concomitant]
     Indication: PSYCHOTIC DISORDER
     Route: 048
     Dates: start: 20111102, end: 20111125
  12. ORFIRIL [Concomitant]
     Indication: PSYCHOTIC DISORDER
     Route: 048
     Dates: start: 20111017, end: 20111101
  13. ORFIRIL [Concomitant]
     Indication: PSYCHOTIC DISORDER
     Route: 048
     Dates: start: 20111126, end: 20111129
  14. ABILIFY [Concomitant]
     Indication: PSYCHOTIC DISORDER
     Route: 048
     Dates: start: 20111013, end: 20111129
  15. ABILIFY [Concomitant]
     Indication: PSYCHOTIC DISORDER
     Route: 048
     Dates: start: 20111011, end: 20111012
  16. LEVOMEPROMAZINE MALEATE [Concomitant]
     Indication: PSYCHOTIC DISORDER
     Route: 048
     Dates: start: 20111108, end: 20111116
  17. LEVOMEPROMAZINE MALEATE [Concomitant]
     Indication: PSYCHOTIC DISORDER
     Route: 048
     Dates: start: 20111117
  18. L-THYROXIN [Concomitant]
     Route: 048
     Dates: start: 20111117
  19. BISOPROLOL [Concomitant]
     Route: 048
     Dates: start: 2009
  20. LASIX [Concomitant]
     Route: 048
     Dates: start: 2009
  21. CLEXANE [Concomitant]
     Route: 048
     Dates: start: 20111124

REACTIONS (2)
  - Pneumonia [Not Recovered/Not Resolved]
  - Psychotic disorder [Not Recovered/Not Resolved]
